FAERS Safety Report 7913989-0 (Version None)
Quarter: 2011Q4

REPORT INFORMATION
  Report Type: 
  Country: None (occurrence: None)
  Receive Date: 20111115
  Receipt Date: 20111110
  Transmission Date: 20120403
  Serious: Yes (Hospitalization)
  Sender: FDA-Public Use
  Company Number: NL-PURDUE-GBR-2011-0009072

PATIENT
  Sex: Female

DRUGS (4)
  1. OXAZEPAM A [Concomitant]
     Dosage: 10 MG, UNK
  2. BUPRENORPHINE [Suspect]
     Indication: BACK PAIN
     Dosage: 5 MCG, Q1H
     Route: 062
     Dates: start: 20110929, end: 20110930
  3. ACETAMINOPHEN [Concomitant]
     Dosage: 500 MG, UNK
  4. CARBASALATE CALCIUM [Concomitant]
     Dosage: 38 MG, UNK
     Route: 048

REACTIONS (4)
  - SWOLLEN TONGUE [None]
  - HYPOTENSION [None]
  - LIP SWELLING [None]
  - HYPERSENSITIVITY [None]
